FAERS Safety Report 18623322 (Version 3)
Quarter: 2025Q1

REPORT INFORMATION
  Report Type: Report from Study
  Country: CA (occurrence: CA)
  Receive Date: 20201216
  Receipt Date: 20250205
  Transmission Date: 20250409
  Serious: Yes (Other)
  Sender: TAKEDA
  Company Number: CA-TAKEDA-2018TUS030087

PATIENT
  Age: 59 Year
  Sex: Female

DRUGS (9)
  1. VEDOLIZUMAB [Suspect]
     Active Substance: VEDOLIZUMAB
     Indication: Colitis ulcerative
  2. VEDOLIZUMAB [Suspect]
     Active Substance: VEDOLIZUMAB
  3. VEDOLIZUMAB [Suspect]
     Active Substance: VEDOLIZUMAB
  4. VEDOLIZUMAB [Suspect]
     Active Substance: VEDOLIZUMAB
  5. TELMISARTAN [Concomitant]
     Active Substance: TELMISARTAN
  6. VITAMIN D NOS [Concomitant]
     Active Substance: CHOLECALCIFEROL\ERGOCALCIFEROL
  7. CALCIUM [Concomitant]
     Active Substance: CALCIUM
  8. PREDNISONE [Concomitant]
     Active Substance: PREDNISONE
  9. MESALAMINE [Concomitant]
     Active Substance: MESALAMINE

REACTIONS (8)
  - Rectal haemorrhage [Unknown]
  - Myalgia [Unknown]
  - Osteoarthritis [Unknown]
  - Haemorrhoidal haemorrhage [Unknown]
  - Anal fissure haemorrhage [Unknown]
  - Musculoskeletal stiffness [Unknown]
  - Haemorrhoids [Not Recovered/Not Resolved]
  - Pain in extremity [Unknown]

NARRATIVE: CASE EVENT DATE: 20180718
